FAERS Safety Report 4892923-4 (Version None)
Quarter: 2006Q1

REPORT INFORMATION
  Report Type: 
  Country: None (occurrence: None)
  Receive Date: 20060126
  Receipt Date: 20051206
  Transmission Date: 20060701
  Serious: Yes (Hospitalization)
  Sender: FDA-Public Use
  Company Number: CH-MERCK-0512CHE00009

PATIENT
  Age: 64 Year
  Sex: Male

DRUGS (2)
  1. VIOXX [Suspect]
     Route: 048
     Dates: end: 20040101
  2. VALDECOXIB [Concomitant]
     Route: 048

REACTIONS (2)
  - ARRHYTHMIA [None]
  - CEREBROVASCULAR ACCIDENT [None]
